FAERS Safety Report 7997727-1 (Version None)
Quarter: 2011Q4

REPORT INFORMATION
  Report Type: 
  Country: None (occurrence: None)
  Receive Date: 20111221
  Receipt Date: 20111219
  Transmission Date: 20120403
  Serious: No
  Sender: FDA-Public Use
  Company Number: US-BAYER-2011-122143

PATIENT
  Age: 22 Year
  Sex: Female

DRUGS (1)
  1. ULTRAVIST 150 [Suspect]
     Indication: IMAGING PROCEDURE
     Dosage: 300MG/ML
     Route: 042
     Dates: start: 20111115

REACTIONS (2)
  - DYSPNOEA [None]
  - RASH [None]
